FAERS Safety Report 8321562-8 (Version None)
Quarter: 2012Q2

REPORT INFORMATION
  Report Type: 
  Country: None (occurrence: None)
  Receive Date: 20120430
  Receipt Date: 20120426
  Transmission Date: 20120825
  Serious: No
  Sender: FDA-Public Use
  Company Number: US-PFIZER INC-2012104054

PATIENT
  Sex: Female
  Weight: 95.692 kg

DRUGS (3)
  1. ARTHROTEC [Suspect]
     Indication: ARTHRITIS
     Dosage: 200MCG/50MG, 1X/DAY
     Route: 048
     Dates: start: 20110101
  2. VITAMIN D [Concomitant]
     Dosage: UNK
  3. NAPROXEN (ALEVE) [Concomitant]
     Dosage: UNK

REACTIONS (2)
  - VITAMIN D DECREASED [None]
  - DRUG INEFFECTIVE [None]
